FAERS Safety Report 6483106-5 (Version None)
Quarter: 2009Q4

REPORT INFORMATION
  Report Type: 
  Country: None (occurrence: None)
  Receive Date: 20091208
  Receipt Date: 20091208
  Transmission Date: 20100525
  Serious: Yes (Hospitalization)
  Sender: FDA-Public Use
  Company Number: None

PATIENT
  Sex: Male
  Weight: 84.9 kg

DRUGS (2)
  1. CETUXIMAB  500MG WEEKLY IV [Suspect]
     Indication: HEAD AND NECK CANCER
     Dosage: 500MG WEEKLY IV
     Route: 042
     Dates: start: 20091130
  2. CISPLATIN [Suspect]
     Indication: HEAD AND NECK CANCER
     Dosage: 150 MG Q21D IV
     Route: 042
     Dates: start: 20091130

REACTIONS (6)
  - DEHYDRATION [None]
  - HYPOPHAGIA [None]
  - NAUSEA [None]
  - ORAL CANDIDIASIS [None]
  - PAIN [None]
  - VOMITING [None]
